FAERS Safety Report 7100899-4 (Version None)
Quarter: 2010Q4

REPORT INFORMATION
  Report Type: 
  Country: None (occurrence: None)
  Receive Date: 20101113
  Receipt Date: 20100330
  Transmission Date: 20110411
  Serious: No
  Sender: FDA-Public Use
  Company Number: US-ALLERGAN-1004183US

PATIENT
  Sex: Female

DRUGS (3)
  1. BOTOXA? [Suspect]
     Indication: ANAL FISSURE
     Dosage: 200 UNITS, SINGLE
     Route: 030
     Dates: start: 20100301, end: 20100301
  2. TRAMADOL HCL [Concomitant]
  3. TYLENOL [Concomitant]

REACTIONS (2)
  - OEDEMA PERIPHERAL [None]
  - URTICARIA [None]
